FAERS Safety Report 24649880 (Version 2)
Quarter: 2024Q4

REPORT INFORMATION
  Report Type: Report from Study
  Country: BR (occurrence: BR)
  Receive Date: 20241122
  Receipt Date: 20241130
  Transmission Date: 20250115
  Serious: Yes (Hospitalization, Other)
  Sender: CELLTRION
  Company Number: BR-CELLTRION INC.-2022BR020650

PATIENT

DRUGS (5)
  1. INFLIXIMAB-DYYB [Suspect]
     Active Substance: INFLIXIMAB-DYYB
     Indication: Rheumatoid arthritis
     Dosage: 2 AMPOULES EVERY 8 WEEKS
     Route: 042
     Dates: start: 20220711
  2. INFLIXIMAB-DYYB [Suspect]
     Active Substance: INFLIXIMAB-DYYB
     Dosage: UNK
     Route: 042
     Dates: start: 20240904
  3. LEFLUNOMIDE [Concomitant]
     Active Substance: LEFLUNOMIDE
     Indication: Rheumatoid arthritis
     Dosage: 1 CAPSULE A DAY, START DATE: 2 YEARS AGO
     Route: 048
  4. CARBOMER [Concomitant]
     Active Substance: CARBOMER
     Indication: Dry eye
     Dosage: ONCE A DAY, FOR 2 YEARS
     Route: 048
  5. LUNAH [Concomitant]
     Indication: Dry eye
     Dosage: EVERY 3 HRS, FOR 2 YEARS
     Route: 048

REACTIONS (16)
  - Cataract operation [Recovered/Resolved]
  - Cataract [Recovered/Resolved]
  - Pain [Recovering/Resolving]
  - Dry eye [Recovered/Resolved]
  - Ocular discomfort [Recovered/Resolved]
  - Fall [Recovering/Resolving]
  - Visual impairment [Unknown]
  - Pain in extremity [Unknown]
  - Arthralgia [Unknown]
  - Eye infection [Unknown]
  - Urinary tract infection [Unknown]
  - Eye inflammation [Recovering/Resolving]
  - Pain [Unknown]
  - Arthralgia [Recovering/Resolving]
  - Treatment delayed [Unknown]
  - Intentional dose omission [Unknown]

NARRATIVE: CASE EVENT DATE: 20241106
